FAERS Safety Report 18350632 (Version 2)
Quarter: 2020Q4

REPORT INFORMATION
  Report Type: Report from Study
  Country: CA (occurrence: CA)
  Receive Date: 20201006
  Receipt Date: 20201118
  Transmission Date: 20210114
  Serious: Yes (Hospitalization)
  Sender: FDA-Public Use
  Company Number: CA-JNJFOC-20200944512

PATIENT
  Age: 33 Year
  Sex: Female

DRUGS (13)
  1. UPTRAVI [Suspect]
     Active Substance: SELEXIPAG
     Indication: PULMONARY HYPERTENSION
     Route: 065
     Dates: start: 20200929
  2. ADCIRCA [Concomitant]
     Active Substance: TADALAFIL
  3. ENOXAPARIN [Concomitant]
     Active Substance: ENOXAPARIN
  4. ONDANSETRON [Concomitant]
     Active Substance: ONDANSETRON
  5. PANTOPRAZOLE [Concomitant]
     Active Substance: PANTOPRAZOLE
  6. OPSUMIT [Suspect]
     Active Substance: MACITENTAN
     Indication: PULMONARY HYPERTENSION
     Route: 048
     Dates: start: 20200619
  7. HYDROXYCHLOROQUINE [Concomitant]
     Active Substance: HYDROXYCHLOROQUINE
  8. CARIPUL [Suspect]
     Active Substance: EPOPROSTENOL
     Indication: PULMONARY HYPERTENSION
     Route: 065
     Dates: start: 20200129
  9. VITAMIN D                          /00107901/ [Concomitant]
     Active Substance: ERGOCALCIFEROL
  10. HYDROMORPHONE [Concomitant]
     Active Substance: HYDROMORPHONE
  11. PREDNISONE. [Concomitant]
     Active Substance: PREDNISONE
  12. ZOPICLONE [Concomitant]
     Active Substance: ZOPICLONE
  13. CALCIUM [Concomitant]
     Active Substance: CALCIUM

REACTIONS (2)
  - Hospitalisation [Unknown]
  - Nonspecific reaction [Recovered/Resolved]

NARRATIVE: CASE EVENT DATE: 20200922
